FAERS Safety Report 10010836 (Version 1)
Quarter: 2014Q1

REPORT INFORMATION
  Report Type: Spontaneous
  Country: CO (occurrence: CO)
  Receive Date: 20140314
  Receipt Date: 20140314
  Transmission Date: 20141002
  Serious: Yes (Life-Threatening, Hospitalization, Disabling)
  Sender: FDA-Public Use
  Company Number: CO-SA-2014SA029620

PATIENT
  Age: 78 Year
  Sex: Female

DRUGS (2)
  1. CLEXANE [Suspect]
     Indication: EMBOLISM
     Route: 058
     Dates: start: 20140206, end: 20140212
  2. WARFARIN [Concomitant]

REACTIONS (7)
  - Somnolence [Unknown]
  - Heparin-induced thrombocytopenia [Unknown]
  - Thrombocytopenia [Unknown]
  - Anaemia [Not Recovered/Not Resolved]
  - Condition aggravated [Unknown]
  - Haemorrhage intracranial [Unknown]
  - Subdural haematoma [Unknown]
